FAERS Safety Report 4268073-7 (Version None)
Quarter: 2004Q1

REPORT INFORMATION
  Report Type: 
  Country: None (occurrence: None)
  Receive Date: 20040109
  Receipt Date: 20040109
  Transmission Date: 20041129
  Serious: Yes (Life-Threatening, Hospitalization)
  Sender: FDA-Public Use
  Company Number: None

PATIENT
  Sex: Male
  Weight: 129.2752 kg

DRUGS (8)
  1. LEVOFLOXACIN 500MG TABLET [Suspect]
     Indication: PNEUMONIA
     Dosage: 500MG PO DAILY
     Route: 048
     Dates: start: 20030726, end: 20030730
  2. COUMADIN [Concomitant]
  3. PEPCID [Concomitant]
  4. AMIODARONE HCL [Concomitant]
  5. LASIX [Concomitant]
  6. MYCELEX [Concomitant]
  7. SOLU-MEDROL [Concomitant]
  8. PREDNISONE [Concomitant]

REACTIONS (2)
  - GRANULOCYTE COUNT DECREASED [None]
  - WHITE BLOOD CELL COUNT DECREASED [None]
